FAERS Safety Report 6226274-2 (Version None)
Quarter: 2009Q2

REPORT INFORMATION
  Report Type: 
  Country: None (occurrence: None)
  Receive Date: 20090612
  Receipt Date: 20090511
  Transmission Date: 20091009
  Serious: No
  Sender: FDA-Public Use
  Company Number: US-ABBOTT-09P-163-0572836-00

PATIENT
  Sex: Male
  Weight: 71.278 kg

DRUGS (3)
  1. HUMIRA [Suspect]
     Indication: CROHN'S DISEASE
     Dosage: RECEIVED 2 PARTIAL INJECTIONS OF THE INITIAL 4 INJECTIONS FOR THE LOADING DOSE
     Dates: start: 20090408
  2. HUMIRA [Suspect]
  3. VITAMINS [Concomitant]
     Indication: ALOPECIA

REACTIONS (2)
  - ACNE [None]
  - INJECTION SITE IRRITATION [None]
